FAERS Safety Report 9498850 (Version 1)
Quarter: 2013Q3

REPORT INFORMATION
  Report Type: Spontaneous
  Country: US (occurrence: None)
  Receive Date: 20130830
  Receipt Date: 20130830
  Transmission Date: 20140515
  Serious: Yes (Hospitalization)
  Sender: FDA-Public Use
  Company Number: HYP201308-000048

PATIENT
  Age: 56 Year
  Sex: Female

DRUGS (29)
  1. RAVICTI (GLYCEROL PHENYLBUTYRATE) ORAL LIQUID [Suspect]
     Indication: AMINO ACID METABOLISM DISORDER
     Route: 048
     Dates: start: 20130605, end: 20130612
  2. RAVICTI (GLYCEROL PHENYLBUTYRATE) ORAL LIQUID [Suspect]
     Indication: AMINO ACID METABOLISM DISORDER
     Route: 048
     Dates: start: 20130612
  3. LASIX [Concomitant]
  4. EFFEXOR ER [Concomitant]
  5. TRAZADONE [Concomitant]
  6. ACTIVE B6 [Concomitant]
  7. CLONAZEPAM [Concomitant]
  8. ARMOUR THYROID [Concomitant]
  9. HYDROCODONE/ACETAMINOPHEN [Concomitant]
  10. CARISOPRODOL [Concomitant]
  11. MULTIPLE VITAMIN [Concomitant]
  12. SODIUM BICARBONATE [Concomitant]
  13. DICYCLOMINE [Concomitant]
  14. VITAMIN D3 [Concomitant]
  15. MILK THISTLE [Concomitant]
  16. METHYL B12 [Concomitant]
  17. PROBIOTIC [Concomitant]
  18. GLUCOSAMINE CHONDROITIN [Concomitant]
  19. COMPLETE DIGESTIVE ENZYME [Concomitant]
  20. ALPHA LIPOIC ACID [Concomitant]
  21. LIVER DETOX [Concomitant]
  22. ATP [Concomitant]
  23. CITRULLINE [Concomitant]
  24. CARNITINE [Concomitant]
  25. COENZYME Q10 [Concomitant]
  26. TOPIRAMATE [Concomitant]
  27. DITROPAN [Concomitant]
  28. PHENERGAN [Concomitant]
  29. RITALIN [Concomitant]

REACTIONS (3)
  - Localised infection [None]
  - Animal bite [None]
  - Refusal of treatment by patient [None]
